FAERS Safety Report 9168560 (Version 1)
Quarter: 2013Q1

REPORT INFORMATION
  Report Type: Spontaneous
  Country: US (occurrence: US)
  Receive Date: 20130318
  Receipt Date: 20130318
  Transmission Date: 20140127
  Serious: Yes (Other)
  Sender: FDA-Public Use
  Company Number: US-ASTRAZENECA-2013SE15715

PATIENT
  Age: 52 Year
  Sex: Female
  Weight: 136.1 kg

DRUGS (13)
  1. BRILINTA [Suspect]
     Route: 048
     Dates: end: 201301
  2. LISINOPRIL [Suspect]
     Route: 048
  3. METOPROLOL [Suspect]
     Route: 065
  4. MORPHINE [Suspect]
     Route: 065
  5. HUMIRA [Suspect]
     Indication: PSORIATIC ARTHROPATHY
     Dosage: 40 MG, ONE IN TWO WEEKS
     Route: 058
     Dates: start: 20120801
  6. COUMADIN [Concomitant]
  7. NITROGLYCERIN [Concomitant]
  8. POTASSIUM [Concomitant]
  9. EFFIENT [Concomitant]
  10. LIPITOR [Concomitant]
  11. HYDROCHLOROTHIAZIDE [Concomitant]
  12. FLEXERIL [Concomitant]
  13. ULTRAM [Concomitant]

REACTIONS (4)
  - Myocardial infarction [Recovered/Resolved]
  - Thrombosis [Recovered/Resolved]
  - Rectal haemorrhage [Recovered/Resolved]
  - Drug hypersensitivity [Unknown]
